FAERS Safety Report 24326051 (Version 1)
Quarter: 2024Q3

REPORT INFORMATION
  Report Type: Spontaneous
  Country: HR (occurrence: HR)
  Receive Date: 20240917
  Receipt Date: 20240917
  Transmission Date: 20241016
  Serious: Yes (Death)
  Sender: TAKEDA
  Company Number: HR-ALPHAMED-31-202408

PATIENT
  Age: 52 Year
  Sex: Female

DRUGS (2)
  1. VELCADE [Suspect]
     Active Substance: BORTEZOMIB
     Indication: Plasma cell leukaemia in remission
     Dosage: 1.3 MILLIGRAM/SQ. METER, Q2WEEKS
     Route: 058
  2. DEXAMETHASONE [Suspect]
     Active Substance: DEXAMETHASONE
     Indication: Plasma cell leukaemia in remission
     Dosage: 20 MILLIGRAM
     Route: 042

REACTIONS (3)
  - Disease recurrence [Fatal]
  - Lymphadenopathy [Unknown]
  - Abdominal pain upper [Unknown]
